FAERS Safety Report 8908603 (Version 1)
Quarter: 2012Q4

REPORT INFORMATION
  Report Type: 
  Country: US (occurrence: US)
  Receive Date: 20121114
  Receipt Date: 20121114
  Transmission Date: 20130627
  Serious: No
  Sender: FDA-Public Use
  Company Number: US-MYLANLABS-2012S1020466

PATIENT
  Age: 58 Year
  Sex: Female
  Weight: 68.04 kg

DRUGS (7)
  1. MORPHINE [Suspect]
     Indication: PAIN
     Route: 048
     Dates: start: 20120901
  2. PREDNISONE [Concomitant]
  3. LEVOTHYROXINE [Concomitant]
  4. PANTOPRAZOLE [Concomitant]
  5. ALLOPURINOL [Concomitant]
  6. URSODIOL [Concomitant]
  7. ALENDRONATE [Concomitant]

REACTIONS (2)
  - Somnolence [Not Recovered/Not Resolved]
  - Fatigue [Not Recovered/Not Resolved]
